FAERS Safety Report 9669839 (Version 2)
Quarter: 2014Q1

REPORT INFORMATION
  Report Type: Report from Study
  Country: AR (occurrence: AR)
  Receive Date: 20131105
  Receipt Date: 20140113
  Transmission Date: 20141002
  Serious: Yes (Hospitalization)
  Sender: FDA-Public Use
  Company Number: AR-ABBVIE-13P-007-1165433-00

PATIENT
  Age: 75 Year
  Sex: Female

DRUGS (4)
  1. HUMIRA [Suspect]
     Indication: RHEUMATOID ARTHRITIS
     Route: 058
     Dates: start: 20110201
  2. TRAPAX [Concomitant]
     Indication: PRODUCT USED FOR UNKNOWN INDICATION
     Dosage: 2 + 1/2 PER DAY
  3. PANTUS [Concomitant]
     Indication: GASTRIC DISORDER
  4. CALADRYL [Concomitant]
     Indication: SKIN DISORDER

REACTIONS (2)
  - Dizziness [Recovered/Resolved]
  - Vertigo [Recovering/Resolving]
